FAERS Safety Report 24253993 (Version 1)
Quarter: 2024Q3

REPORT INFORMATION
  Report Type: Spontaneous
  Country: TR (occurrence: TR)
  Receive Date: 20240827
  Receipt Date: 20240827
  Transmission Date: 20241017
  Serious: Yes (Life-Threatening, Other)
  Sender: NOVARTIS
  Company Number: TR-002147023-NVSC2024TR172335

PATIENT
  Age: 43 Year
  Sex: Male

DRUGS (1)
  1. DESFERAL [Suspect]
     Active Substance: DEFEROXAMINE MESYLATE
     Indication: Thalassaemia
     Dosage: 500 MG (VIAL)
     Route: 065

REACTIONS (4)
  - Coma [Unknown]
  - Blood iron increased [Unknown]
  - Abdominal discomfort [Unknown]
  - Product supply issue [Unknown]
